FAERS Safety Report 9766914 (Version 2)
Quarter: 2014Q1

REPORT INFORMATION
  Report Type: Spontaneous
  Country: US (occurrence: US)
  Receive Date: 20131217
  Receipt Date: 20140211
  Transmission Date: 20141002
  Serious: No
  Sender: FDA-Public Use
  Company Number: US-BIOGENIDEC-2013BI119568

PATIENT
  Age: 47 Year
  Sex: Female
  Weight: 60 kg

DRUGS (14)
  1. TECFIDERA [Suspect]
     Indication: MULTIPLE SCLEROSIS
     Dates: start: 201306
  2. AMPYRA [Concomitant]
     Indication: GAIT DISTURBANCE
     Route: 048
     Dates: start: 201307
  3. MECLIZINE [Concomitant]
  4. OXYBUTYNIN CHLORIDE [Concomitant]
  5. SETRALINE [Concomitant]
  6. BACLOFEN [Concomitant]
  7. TYLENOL #3 WITH CODEINE [Concomitant]
  8. FLORINAL [Concomitant]
  9. IBUPROFEN [Concomitant]
  10. VENTOLIN [Concomitant]
  11. VITAMIN D3 [Concomitant]
  12. VITAMIN B12 [Concomitant]
  13. EVENING PRIMROSE [Concomitant]
  14. MAGNESIUM [Concomitant]

REACTIONS (6)
  - Red cell distribution width increased [Not Recovered/Not Resolved]
  - Red blood cell count increased [Not Recovered/Not Resolved]
  - Blood cholesterol increased [Not Recovered/Not Resolved]
  - Gait disturbance [Unknown]
  - White blood cell count decreased [Not Recovered/Not Resolved]
  - Lymphocyte count decreased [Not Recovered/Not Resolved]
